FAERS Safety Report 6833927-1 (Version None)
Quarter: 2010Q3

REPORT INFORMATION
  Report Type: 
  Country: None (occurrence: None)
  Receive Date: 20100712
  Receipt Date: 20070618
  Transmission Date: 20110219
  Serious: No
  Sender: FDA-Public Use
  Company Number: US-PFIZER INC-2007028656

PATIENT
  Sex: Female

DRUGS (3)
  1. VARENICLINE [Suspect]
     Indication: SMOKING CESSATION THERAPY
     Dates: start: 20070317, end: 20070329
  2. NEURONTIN [Suspect]
     Indication: HEADACHE
     Dates: end: 20070301
  3. LEXAPRO [Suspect]
     Indication: FAMILY STRESS
     Dates: end: 20070301

REACTIONS (10)
  - ABDOMINAL PAIN [None]
  - ABNORMAL DREAMS [None]
  - FATIGUE [None]
  - HEADACHE [None]
  - MIDDLE INSOMNIA [None]
  - NAUSEA [None]
  - NIGHTMARE [None]
  - SOMNOLENCE [None]
  - VOMITING [None]
  - WEIGHT INCREASED [None]
